FAERS Safety Report 7777547-3 (Version None)
Quarter: 2011Q3

REPORT INFORMATION
  Report Type: 
  Country: None (occurrence: None)
  Receive Date: 20110926
  Receipt Date: 20110921
  Transmission Date: 20111222
  Serious: Yes (Hospitalization, Other)
  Sender: FDA-Public Use
  Company Number: CA-ABBOTT-10P-028-0658785-00

PATIENT
  Sex: Female
  Weight: 75.818 kg

DRUGS (18)
  1. ARAVA [Concomitant]
     Indication: PRODUCT USED FOR UNKNOWN INDICATION
     Route: 048
  2. VITAMIN D [Concomitant]
     Indication: VITAMIN SUPPLEMENTATION
     Route: 048
  3. NAPROXEN [Concomitant]
     Indication: RHEUMATOID ARTHRITIS
     Route: 048
     Dates: start: 20050101, end: 20110224
  4. VOLTAREN [Concomitant]
     Indication: PRODUCT USED FOR UNKNOWN INDICATION
     Route: 048
  5. PREDNISONE [Concomitant]
     Indication: RHEUMATOID ARTHRITIS
     Route: 048
     Dates: start: 20050101
  6. ASCORBIC ACID [Concomitant]
     Indication: VITAMIN SUPPLEMENTATION
     Route: 048
  7. PANTOPRAZOLE SODIUM [Concomitant]
     Indication: GASTROOESOPHAGEAL REFLUX DISEASE
     Dates: start: 20010101
  8. HUMIRA [Suspect]
     Indication: RHEUMATOID ARTHRITIS
     Route: 058
     Dates: start: 20050425, end: 20100801
  9. ENTOCORT EC [Concomitant]
     Indication: PRODUCT USED FOR UNKNOWN INDICATION
     Route: 048
  10. ACETYLSALICYLIC ACID SRT [Concomitant]
     Indication: THROMBOSIS
     Route: 048
  11. PREDNISONE [Concomitant]
     Dosage: 10 MG DAILY
     Route: 048
     Dates: end: 20100716
  12. ALTACE [Concomitant]
     Indication: HYPERTENSION
     Route: 048
  13. CORTICOSTEROIDS [Concomitant]
     Indication: PRODUCT USED FOR UNKNOWN INDICATION
  14. RABEPRAZOLE SODIUM [Concomitant]
     Indication: GASTRIC DISORDER
     Route: 048
  15. LEFLUNOMIDE [Concomitant]
     Indication: RHEUMATOID ARTHRITIS
     Route: 048
     Dates: start: 20050101
  16. AMITRIPTYLINE HCL [Concomitant]
     Indication: PAIN
     Dosage: AT BEDTIME
     Route: 048
     Dates: start: 20010101
  17. CALCIUM+MAGNESIUM [Concomitant]
     Indication: VITAMIN SUPPLEMENTATION
     Route: 048
  18. RAMIPRIL [Concomitant]
     Indication: HYPERTENSION
     Dates: start: 20040101

REACTIONS (15)
  - SURGICAL FAILURE [None]
  - HIP FRACTURE [None]
  - OSTEOARTHRITIS [None]
  - PAIN [None]
  - OSTEOMYELITIS [None]
  - ARTHRALGIA [None]
  - IMPAIRED HEALING [None]
  - DRUG HYPERSENSITIVITY [None]
  - INFECTION [None]
  - WRIST SURGERY [None]
  - HYPOTHERMIA [None]
  - SEPTIC SHOCK [None]
  - DIARRHOEA [None]
  - FOREARM FRACTURE [None]
  - LIMB DEFORMITY [None]
